FAERS Safety Report 8594838-7 (Version None)
Quarter: 2012Q3

REPORT INFORMATION
  Report Type: 
  Country: None (occurrence: None)
  Receive Date: 20120815
  Receipt Date: 20120731
  Transmission Date: 20120928
  Serious: Yes (Death)
  Sender: FDA-Public Use
  Company Number: GR-ASTELLAS-2012EU005776

PATIENT

DRUGS (1)
  1. TACROLIMUS [Suspect]
     Dosage: UNK
     Route: 065

REACTIONS (1)
  - CHOLECYSTITIS [None]
